FAERS Safety Report 5144292-2 (Version None)
Quarter: 2006Q4

REPORT INFORMATION
  Report Type: 
  Country: None (occurrence: None)
  Receive Date: 20061030
  Receipt Date: 20061016
  Transmission Date: 20070319
  Serious: Yes (Hospitalization, Other)
  Sender: FDA-Public Use
  Company Number: US_991131170

PATIENT
  Age: 71 Year
  Sex: Female
  Weight: 81.8 kg

DRUGS (5)
  1. HUMULIN N [Suspect]
     Indication: DIABETES MELLITUS
     Dosage: 49 U, DAILY (1/D), SUBCUTANEOUS
     Route: 058
     Dates: start: 19980101
  2. HUMULIN (HUMAN INSULIN (RDNA ORIGIN) 30% REGULAR, 70% NPH) PEN, DISPOS [Suspect]
     Indication: DIABETES MELLITUS
     Dosage: 20 U, DAILY (1/D), SUBCUTANEOUS
     Route: 058
     Dates: start: 19890101
  3. GLUCOTROL [Concomitant]
  4. LANTUS [Concomitant]
  5. HUMULIN 70/30 PEN (HUMULIN 70/30 PEN) [Concomitant]

REACTIONS (14)
  - ANXIETY [None]
  - CATARACT [None]
  - CHEST PAIN [None]
  - CHROMATURIA [None]
  - DYSURIA [None]
  - EYE HAEMORRHAGE [None]
  - HEART RATE INCREASED [None]
  - MEMORY IMPAIRMENT [None]
  - MUSCLE TIGHTNESS [None]
  - PAIN [None]
  - PAIN IN EXTREMITY [None]
  - PHARMACEUTICAL PRODUCT COMPLAINT [None]
  - STRESS [None]
  - VISUAL DISTURBANCE [None]
